FAERS Safety Report 5858711-7 (Version None)
Quarter: 2008Q3

REPORT INFORMATION
  Report Type: 
  Country: None (occurrence: None)
  Receive Date: 20080826
  Receipt Date: 20080819
  Transmission Date: 20090109
  Serious: Yes (Hospitalization)
  Sender: FDA-Public Use
  Company Number: US-BOEHRINGER INGELHEIM GMBH, GERMANY-2008-BP-12771PF

PATIENT
  Sex: Female
  Weight: 45 kg

DRUGS (5)
  1. SPIRIVA [Suspect]
     Indication: EMPHYSEMA
     Route: 055
     Dates: start: 20080613, end: 20080703
  2. CHANTIX [Suspect]
     Indication: SMOKING CESSATION THERAPY
     Dates: start: 20080613, end: 20080701
  3. VITAMIN B COMPLEX CAP [Concomitant]
     Dates: start: 20080701
  4. VITAMIN C WITH ROSE HIPS [Concomitant]
  5. SIMCOR [Concomitant]
     Indication: BLOOD CHOLESTEROL INCREASED
     Route: 048
     Dates: start: 20080605

REACTIONS (16)
  - ABDOMINAL PAIN UPPER [None]
  - CONDITION AGGRAVATED [None]
  - DYSGEUSIA [None]
  - DYSPEPSIA [None]
  - DYSPNOEA [None]
  - EATING DISORDER [None]
  - FEELING ABNORMAL [None]
  - HAEMORRHOIDS [None]
  - NAUSEA [None]
  - ORAL CANDIDIASIS [None]
  - ORAL DISCOMFORT [None]
  - PAROSMIA [None]
  - PHARYNGEAL OEDEMA [None]
  - URTICARIA [None]
  - WEIGHT DECREASED [None]
  - WHITE BLOOD CELL COUNT INCREASED [None]
